FAERS Safety Report 17338825 (Version 1)
Quarter: 2020Q1

REPORT INFORMATION
  Report Type: Spontaneous
  Country: US (occurrence: US)
  Receive Date: 20200129
  Receipt Date: 20200129
  Transmission Date: 20200409
  Serious: No
  Sender: FDA-Public Use
  Company Number: US-009507513-2001USA009875

PATIENT
  Sex: Female

DRUGS (1)
  1. KEYTRUDA [Suspect]
     Active Substance: PEMBROLIZUMAB
     Dosage: ROUTE: PORT
     Dates: start: 20200116

REACTIONS (9)
  - Catheter site pain [Unknown]
  - Catheter site swelling [Recovering/Resolving]
  - Movement disorder [Unknown]
  - Pyrexia [Recovering/Resolving]
  - Chromaturia [Unknown]
  - Faeces discoloured [Unknown]
  - Catheter site erythema [Recovering/Resolving]
  - Malaise [Unknown]
  - Influenza [Unknown]

NARRATIVE: CASE EVENT DATE: 20200124
